FAERS Safety Report 21083947 (Version 1)
Quarter: 2022Q3

REPORT INFORMATION
  Report Type: Spontaneous
  Country: US (occurrence: US)
  Receive Date: 20220714
  Receipt Date: 20220714
  Transmission Date: 20221027
  Serious: No
  Sender: FDA-Public Use
  Company Number: US-JAZZ-2022-US-011834

PATIENT
  Sex: Male

DRUGS (3)
  1. EPIDIOLEX [Suspect]
     Active Substance: CANNABIDIOL
     Indication: Idiopathic generalised epilepsy
     Dosage: 5 MILLILITER, BID
     Route: 048
  2. VIMPAT [Concomitant]
     Active Substance: LACOSAMIDE
  3. BRIVIACT [Concomitant]
     Active Substance: BRIVARACETAM

REACTIONS (5)
  - Diarrhoea [Unknown]
  - Somnolence [Unknown]
  - Decreased appetite [Unknown]
  - Insomnia [Unknown]
  - Off label use [Unknown]
